FAERS Safety Report 14038625 (Version 1)
Quarter: 2017Q4

REPORT INFORMATION
  Report Type: Report from Study
  Country: DE (occurrence: DE)
  Receive Date: 20171004
  Receipt Date: 20171004
  Transmission Date: 20180321
  Serious: Yes (Death)
  Sender: FDA-Public Use
  Company Number: DE-BAYER-2017-183404

PATIENT

DRUGS (2)
  1. ASPIRIN. [Suspect]
     Active Substance: ASPIRIN
     Dosage: UNK
  2. CLOPIDOGREL [Interacting]
     Active Substance: CLOPIDOGREL BISULFATE

REACTIONS (4)
  - Retroperitoneal haemorrhage [Fatal]
  - Labelled drug-drug interaction medication error [Fatal]
  - Shock haemorrhagic [Fatal]
  - Drug administration error [Fatal]
